FAERS Safety Report 10651297 (Version 1)
Quarter: 2014Q4

REPORT INFORMATION
  Report Type: Spontaneous
  Country: GB (occurrence: GB)
  Receive Date: 20141215
  Receipt Date: 20141215
  Transmission Date: 20150529
  Serious: Yes (Other)
  Sender: FDA-Public Use
  Company Number: GB-RANBAXY-2014R1-90049

PATIENT

DRUGS (9)
  1. COCODAMOL [Suspect]
     Active Substance: ACETAMINOPHEN\CODEINE PHOSPHATE
     Indication: BACK PAIN
     Dosage: UNK
     Route: 064
  2. COCODAMOL [Suspect]
     Active Substance: ACETAMINOPHEN\CODEINE PHOSPHATE
     Indication: STRESS
  3. ENOXAPARIN SODIUM. [Suspect]
     Active Substance: ENOXAPARIN SODIUM
     Indication: PULMONARY EMBOLISM
     Dosage: UNK
     Route: 064
  4. ROCURONIUM [Concomitant]
     Active Substance: ROCURONIUM BROMIDE
     Indication: MAINTENANCE OF ANAESTHESIA
     Dosage: 40 MG
     Route: 064
  5. THIOPENTAL [Concomitant]
     Active Substance: THIOPENTAL
     Indication: MAINTENANCE OF ANAESTHESIA
     Dosage: 500MG
     Route: 064
  6. ALFENTANIL [Concomitant]
     Active Substance: ALFENTANIL
     Indication: MAINTENANCE OF ANAESTHESIA
     Dosage: 1 MG
     Route: 064
  7. MORPHINE [Concomitant]
     Active Substance: MORPHINE
     Indication: MAINTENANCE OF ANAESTHESIA
     Dosage: 10 MG
     Route: 064
  8. SUXAMETHONIUM [Concomitant]
     Active Substance: SUCCINYLCHOLINE
     Indication: MAINTENANCE OF ANAESTHESIA
     Dosage: 100 MG
     Route: 064
  9. CO-AMOXICLAV [Concomitant]
     Active Substance: AMOXICILLIN\CLAVULANIC ACID
     Indication: MAINTENANCE OF ANAESTHESIA
     Dosage: 1.2 G
     Route: 064

REACTIONS (5)
  - Hepatic enzyme increased [Unknown]
  - Premature baby [Unknown]
  - Overdose [Recovered/Resolved]
  - Foetal exposure during pregnancy [Recovered/Resolved]
  - Foetal heart rate deceleration abnormality [Unknown]
